FAERS Safety Report 4653137-6 (Version None)
Quarter: 2005Q2

REPORT INFORMATION
  Report Type: 
  Country: None (occurrence: None)
  Receive Date: 20050505
  Receipt Date: 20050421
  Transmission Date: 20051028
  Serious: Yes (Other)
  Sender: FDA-Public Use
  Company Number: DE-JNJFOC-20050404922

PATIENT
  Age: 50 Year

DRUGS (1)
  1. REMICADE [Suspect]
     Indication: SPONDYLOARTHROPATHY
     Route: 042

REACTIONS (3)
  - ABSCESS [None]
  - INTERVERTEBRAL DISCITIS [None]
  - SALMONELLOSIS [None]
